FAERS Safety Report 16216188 (Version 2)
Quarter: 2019Q2

REPORT INFORMATION
  Report Type: Spontaneous
  Country: GB (occurrence: GB)
  Receive Date: 20190419
  Receipt Date: 20190429
  Transmission Date: 20190711
  Serious: Yes (Other)
  Sender: FDA-Public Use
  Company Number: GB-AMGEN-GBRSP2019061604

PATIENT
  Age: 51 Year
  Sex: Male

DRUGS (10)
  1. SODIUM VALPROATE [Concomitant]
     Active Substance: VALPROATE SODIUM
     Indication: MOOD SWINGS
     Dosage: 800 MILLIGRAM, QD DAILY
     Route: 048
  2. CODEINE [Concomitant]
     Active Substance: CODEINE
     Dosage: 60 MG, AS NEEDED
     Route: 048
  3. ETORICOXIB. [Concomitant]
     Active Substance: ETORICOXIB
     Indication: PAIN
     Dosage: 60 MILLIGRAM, QD DAILY
     Route: 048
  4. CODEINE [Concomitant]
     Active Substance: CODEINE
     Indication: PAIN
     Dosage: 60 MILLIGRAM, AS NECESSARY (AS NEEDED)
     Route: 048
  5. ENBREL [Suspect]
     Active Substance: ETANERCEPT
     Indication: ANKYLOSING SPONDYLITIS
     Dosage: UNK
     Route: 065
     Dates: start: 20190221
  6. ZOPICLONE [Concomitant]
     Active Substance: ZOPICLONE
     Indication: INSOMNIA
     Dosage: 7.5 MILLIGRAM, QD (DAILY)
     Route: 048
  7. ZAPONEX [Suspect]
     Active Substance: CLOZAPINE
     Indication: SCHIZOPHRENIA
     Dosage: 425 MG, DAILY TAKEN AT NIGHT
     Route: 048
     Dates: start: 20111025, end: 20190228
  8. VENLAFAXINE [Concomitant]
     Active Substance: VENLAFAXINE HYDROCHLORIDE
     Indication: DEPRESSED MOOD
     Dosage: 225 MILLIGRAM, QD DAILY
     Route: 048
  9. OMEPRAZOLE. [Concomitant]
     Active Substance: OMEPRAZOLE
     Indication: GASTROOESOPHAGEAL REFLUX DISEASE
     Dosage: 20 MILLIGRAM, QD (DAILY)
     Route: 048
  10. PROCYCLIDINE [Concomitant]
     Active Substance: PROCYCLIDINE
     Indication: EXTRAPYRAMIDAL DISORDER
     Dosage: 10 MILLIGRAM, QD (DAILY)
     Route: 048

REACTIONS (4)
  - White blood cell count decreased [Recovered/Resolved]
  - Neutrophil count decreased [Recovered/Resolved]
  - Neutropenia [Recovered/Resolved]
  - Drug monitoring procedure incorrectly performed [Recovered/Resolved]

NARRATIVE: CASE EVENT DATE: 20190225
